FAERS Safety Report 9156365 (Version 1)
Quarter: 2013Q1

REPORT INFORMATION
  Report Type: Spontaneous
  Country: US (occurrence: None)
  Receive Date: 20130308
  Receipt Date: 20130308
  Transmission Date: 20140127
  Serious: No
  Sender: FDA-Public Use
  Company Number: None

PATIENT
  Age: 57 Year
  Sex: Male
  Weight: 80.9 kg

DRUGS (2)
  1. SIMVASTATIN [Suspect]
     Indication: HYPERLIPIDAEMIA
     Dosage: 40 MG AT BEDTIME PO
     Route: 048
     Dates: start: 20100225, end: 20110919
  2. METHAZOLAMIDE [Suspect]
     Indication: GLAUCOMA
     Route: 048
     Dates: start: 20100301, end: 20120408

REACTIONS (3)
  - Dysuria [None]
  - Dystonia [None]
  - Electrocardiogram abnormal [None]
